FAERS Safety Report 8955843 (Version 1)
Quarter: 2012Q4

REPORT INFORMATION
  Report Type: 
  Country: US (occurrence: US)
  Receive Date: 20121210
  Receipt Date: 20121210
  Transmission Date: 20130627
  Serious: No
  Sender: FDA-Public Use
  Company Number: US-009507513-1212USA003025

PATIENT
  Age: 60 Year
  Sex: Female

DRUGS (2)
  1. SAPHRIS [Suspect]
     Dosage: 1 DF, qd
     Route: 060
  2. ZOLOFT [Concomitant]

REACTIONS (1)
  - Hypersensitivity [Recovered/Resolved]
